FAERS Safety Report 26016231 (Version 1)
Quarter: 2025Q4

REPORT INFORMATION
  Report Type: Spontaneous
  Country: US (occurrence: US)
  Receive Date: 20251110
  Receipt Date: 20251110
  Transmission Date: 20260118
  Serious: No
  Sender: ROCHE
  Company Number: US-ROCHE-10000427015

PATIENT
  Sex: Female

DRUGS (12)
  1. ACTEMRA ACTPEN [Suspect]
     Active Substance: TOCILIZUMAB
     Indication: Systemic lupus erythematosus
     Dosage: STRENGTH: 162 MG/ 0.9 ML
     Route: 058
  2. ALENDRONATE [Concomitant]
     Active Substance: ALENDRONATE SODIUM
  3. ATORVASTATIN [Concomitant]
     Active Substance: ATORVASTATIN
  4. JARDIANCE TAB 25MG [Concomitant]
  5. FLUCONAZOLE TAB 200 MG [Concomitant]
  6. DULOXETINE H CPE 60 MG [Concomitant]
  7. HYDROXYCHLOR TAB 200 MG [Concomitant]
  8. NIFEDIPINE E TB2 60 MG [Concomitant]
  9. PANTOPRAZOLE TBE 40 MG [Concomitant]
  10. VALSARTAN HY TAB 160-12.5 [Concomitant]
  11. DOTTI PTT 0.025 MG/24 HR [Concomitant]
  12. CLONIDINE PTW 0.2MG/24 HR [Concomitant]

REACTIONS (2)
  - Off label use [Unknown]
  - No adverse event [Unknown]
